FAERS Safety Report 5031733-4 (Version None)
Quarter: 2006Q2

REPORT INFORMATION
  Report Type: 
  Country: None (occurrence: None)
  Receive Date: 20060619
  Receipt Date: 20060609
  Transmission Date: 20061013
  Serious: Yes (Other)
  Sender: FDA-Public Use
  Company Number: 0601338US

PATIENT
  Sex: Female

DRUGS (3)
  1. OFLOXACIN [Suspect]
     Indication: ULCERATIVE KERATITIS
     Dosage: OPHTHALMIC
     Route: 047
  2. CYCLOPENTOLATE HYDROCHLORIDE [Suspect]
     Indication: ULCERATIVE KERATITIS
     Dosage: OPHTHLAMIC
     Route: 047
  3. LATANOPROST [Suspect]

REACTIONS (3)
  - CORNEAL DEPOSITS [None]
  - DRUG INTERACTION [None]
  - PH BODY FLUID ABNORMAL [None]
